FAERS Safety Report 6499168-5 (Version None)
Quarter: 2009Q4

REPORT INFORMATION
  Report Type: 
  Country: None (occurrence: None)
  Receive Date: 20091215
  Receipt Date: 20091207
  Transmission Date: 20100525
  Serious: Yes (Hospitalization)
  Sender: FDA-Public Use
  Company Number: US-ELI_LILLY_AND_COMPANY-US200912001535

PATIENT
  Sex: Female

DRUGS (6)
  1. HUMALOG MIX 75/25 [Suspect]
     Dosage: 25 U, EACH MORNING
     Dates: start: 19981101
  2. HUMALOG MIX 75/25 [Suspect]
     Dosage: 17 U, EACH EVENING
     Dates: start: 19981101
  3. HUMALOG MIX 75/25 [Suspect]
     Dosage: UNK, AS NEEDED
     Dates: start: 19981101
  4. AVANDIA [Concomitant]
  5. ANTIHYPERTENSIVES [Concomitant]
     Indication: HYPERTENSION
  6. WATER PILLS [Concomitant]

REACTIONS (6)
  - ARTHRITIS [None]
  - BLOOD GLUCOSE INCREASED [None]
  - BREAST CANCER RECURRENT [None]
  - DRUG INEFFECTIVE [None]
  - POOR QUALITY DRUG ADMINISTERED [None]
  - WRONG TECHNIQUE IN DRUG USAGE PROCESS [None]
